FAERS Safety Report 4557550-7 (Version None)
Quarter: 2005Q1

REPORT INFORMATION
  Report Type: 
  Country: None (occurrence: None)
  Receive Date: 20050120
  Receipt Date: 20050103
  Transmission Date: 20050727
  Serious: Yes (Disabling)
  Sender: FDA-Public Use
  Company Number: US-MERCK-0501USA00133

PATIENT
  Age: 76 Year
  Sex: Female

DRUGS (3)
  1. FOSAMAX [Suspect]
     Indication: OSTEOPOROSIS
     Route: 048
  2. ALEVE [Concomitant]
     Route: 065
  3. ALEVE [Concomitant]
     Route: 065

REACTIONS (1)
  - EXOSTOSIS [None]
